FAERS Safety Report 7751685-3 (Version None)
Quarter: 2011Q3

REPORT INFORMATION
  Report Type: 
  Country: None (occurrence: None)
  Receive Date: 20110915
  Receipt Date: 20110831
  Transmission Date: 20111222
  Serious: Yes (Death, Life-Threatening, Hospitalization, Other)
  Sender: FDA-Public Use
  Company Number: JP-BRISTOL-MYERS SQUIBB COMPANY-14791164

PATIENT
  Age: 63 Year
  Sex: Male
  Weight: 65 kg

DRUGS (4)
  1. IRINOTECAN HCL [Suspect]
     Indication: COLON CANCER
     Dosage: 150MG/M2: 01APR09-03JUN09 180MG:1 IN 2 WK 24JUN09-CONT
     Route: 042
     Dates: start: 20090401
  2. RESTAMIN [Concomitant]
     Indication: PREMEDICATION
     Dosage: TABLET
     Route: 048
     Dates: start: 20090401, end: 20090909
  3. ERBITUX [Suspect]
     Indication: COLON CANCER
     Dosage: 400MG/M2:01APR09-01APR09 250MG/M2:08APR09-03JUN09(56D) 300MG:17JUN09-09SEP09(84D)
     Route: 042
     Dates: start: 20090401, end: 20090909
  4. DECADRON [Concomitant]
     Indication: PREMEDICATION
     Route: 042
     Dates: start: 20090401, end: 20090909

REACTIONS (6)
  - CYTOMEGALOVIRUS TEST POSITIVE [None]
  - ANGINA PECTORIS [None]
  - NEUTROPHIL COUNT DECREASED [None]
  - INTERSTITIAL LUNG DISEASE [None]
  - NEOPLASM MALIGNANT [None]
  - RESPIRATORY FAILURE [None]
